FAERS Safety Report 17146000 (Version 1)
Quarter: 2019Q4

REPORT INFORMATION
  Report Type: Spontaneous
  Country: FR (occurrence: FR)
  Receive Date: 20191212
  Receipt Date: 20191212
  Transmission Date: 20200122
  Serious: Yes (Hospitalization)
  Sender: FDA-Public Use
  Company Number: FR-UCBSA-2019052354

PATIENT
  Age: 46 Year
  Sex: Female
  Weight: 77 kg

DRUGS (8)
  1. LEVOCETIRIZINE HYDROCHLORIDE [Suspect]
     Active Substance: LEVOCETIRIZINE HYDROCHLORIDE
     Indication: ANXIETY
     Dosage: UNK
     Route: 048
     Dates: end: 20190327
  2. ZOPICLONE [Suspect]
     Active Substance: ZOPICLONE
     Indication: INSOMNIA
     Dosage: UNK
     Route: 048
     Dates: end: 20190327
  3. ACIDE VALPROIQUE [Suspect]
     Active Substance: VALPROIC ACID
     Indication: POISONING DELIBERATE
     Dosage: 2000 MILLIGRAM, (TOTAL)
     Route: 048
     Dates: start: 20190327, end: 20190327
  4. FLUOXETINI HYDROCHLORIDUM [Suspect]
     Active Substance: FLUOXETINE HYDROCHLORIDE
     Indication: DEPRESSION
     Route: 048
     Dates: end: 20190327
  5. THERALENE [Suspect]
     Active Substance: TRIMEPRAZINE
     Indication: SLEEP DISORDER
     Route: 048
     Dates: end: 20190327
  6. CYAMEMAZINE [Suspect]
     Active Substance: CYAMEMAZINE
     Indication: POISONING DELIBERATE
     Dosage: 250 MILLIGRAM, ONE TIME DOSE
     Route: 048
     Dates: start: 20190327, end: 20190327
  7. CODEINE MONOHYDRATE [Suspect]
     Active Substance: CODEINE
     Indication: PAIN
     Route: 048
     Dates: end: 20190327
  8. PARACETAMOL [Concomitant]
     Active Substance: ACETAMINOPHEN
     Indication: PRODUCT USED FOR UNKNOWN INDICATION

REACTIONS (2)
  - Coma [Recovered/Resolved]
  - Hypotension [Recovered/Resolved]

NARRATIVE: CASE EVENT DATE: 20190327
